FAERS Safety Report 10956780 (Version 1)
Quarter: 2015Q1

REPORT INFORMATION
  Report Type: Spontaneous
  Country: US (occurrence: US)
  Receive Date: 20150326
  Receipt Date: 20150326
  Transmission Date: 20150721
  Serious: No
  Sender: FDA-Public Use
  Company Number: US-MYLANLABS-2014M1004392

PATIENT
  Age: 52 Year
  Sex: Female
  Weight: 58.96 kg

DRUGS (8)
  1. EMSAM [Suspect]
     Active Substance: SELEGILINE
     Dosage: 9 MG, QD
     Route: 062
     Dates: start: 20140214, end: 20140327
  2. EMSAM [Suspect]
     Active Substance: SELEGILINE
     Indication: MAJOR DEPRESSION
  3. EMSAM [Suspect]
     Active Substance: SELEGILINE
     Indication: MAJOR DEPRESSION
     Dosage: 6 MG, QD
     Route: 062
     Dates: start: 20140131, end: 20140213
  4. EMSAM [Suspect]
     Active Substance: SELEGILINE
     Dosage: UNK
  5. KETAMINE [Concomitant]
     Active Substance: KETAMINE
     Dosage: UNK
  6. PREVACID [Concomitant]
     Active Substance: LANSOPRAZOLE
     Indication: GASTROOESOPHAGEAL REFLUX DISEASE
     Dosage: UNK
  7. DICLOFENAC [Concomitant]
     Active Substance: DICLOFENAC
     Indication: ARTHRITIS
     Dosage: UNK
  8. MULTIVITAMIN                       /00097801/ [Concomitant]
     Active Substance: VITAMINS
     Dosage: ONE, QD

REACTIONS (5)
  - Application site erythema [Recovered/Resolved]
  - Application site rash [Recovered/Resolved]
  - Application site exfoliation [Recovered/Resolved]
  - Application site pruritus [Recovered/Resolved]
  - Application site vesicles [Recovered/Resolved]

NARRATIVE: CASE EVENT DATE: 2014
